FAERS Safety Report 8580481-2 (Version None)
Quarter: 2012Q3

REPORT INFORMATION
  Report Type: 
  Country: None (occurrence: None)
  Receive Date: 20120808
  Receipt Date: 20120808
  Transmission Date: 20120928
  Serious: Yes (Life-Threatening, Hospitalization, Disabling)
  Sender: FDA-Public Use
  Company Number: US-AMGEN-US227507

PATIENT
  Age: 53 Year
  Sex: Female
  Weight: 67.2 kg

DRUGS (19)
  1. CINACALCET HYDROCHLORIDE [Suspect]
     Indication: HYPERPARATHYROIDISM SECONDARY
     Dosage: UNK BLINDED, QD
     Route: 048
     Dates: start: 20060914
  2. ACETAMINOPHEN AND OXYCODONE HCL [Concomitant]
     Dosage: 325 MG, Q6H
     Dates: start: 20050210, end: 20080118
  3. FAMOTIDINE [Concomitant]
     Dosage: UNK UNK, BID
     Dates: start: 20051209, end: 20080118
  4. PAROXETINE HCL [Concomitant]
     Dosage: 20 MG, QD
     Dates: start: 20060817, end: 20080118
  5. ACETAMINOPHEN AND HYDROCODONE BITARTRATE [Concomitant]
     Dosage: UNK UNK, Q4H
     Dates: start: 20070208
  6. CLONAZEPAM [Concomitant]
     Dosage: .5 MG, BID
     Dates: start: 20060808, end: 20080118
  7. AMITRIPTYLINE HCL [Concomitant]
     Dosage: 10 MG, UNK
     Dates: start: 20060319, end: 20080118
  8. SODIUM CHLORIDE [Concomitant]
     Dosage: UNK UNK, PRN
  9. GABAPENTIN [Concomitant]
     Dosage: 200 MG, UNK
     Dates: start: 20070122
  10. DIATX [Concomitant]
     Dosage: UNK UNK, QD
     Dates: start: 20060508, end: 20080118
  11. MECLIZINE [Concomitant]
     Dosage: 12.5 MG, BID
     Dates: start: 20060926, end: 20080118
  12. CALCIUM CARBONATE [Concomitant]
     Dosage: UNK UNK, TID
     Dates: start: 20070410, end: 20080118
  13. ESOMEPRAZOLE MAGNESIUM [Concomitant]
     Dosage: 40 MG, BID
     Dates: start: 20060319, end: 20080118
  14. AMLODIPINE BESYLATE/ATORVASTATIN CALCIUM [Concomitant]
     Dosage: UNK UNK, UNK
     Dates: start: 20070320, end: 20080118
  15. WARFARIN SODIUM [Concomitant]
     Dosage: 5 MG, QD
     Dates: start: 20070220, end: 20070531
  16. CYPROHEPTADINE HYDROCHLORIDE [Concomitant]
     Dosage: 4 MG, QD
     Dates: start: 20060321, end: 20080129
  17. PHOSLO [Concomitant]
     Dosage: UNK UNK, TID
     Dates: start: 20061010
  18. FLUDROCORTISONE ACETATE [Concomitant]
     Dosage: UNK UNK, QD
  19. MIDODRINE HYDROCHLORIDE [Concomitant]
     Dosage: UNK UNK, QD

REACTIONS (4)
  - PLEURAL EFFUSION [None]
  - CARDIAC FAILURE CONGESTIVE [None]
  - VENTRICULAR TACHYCARDIA [None]
  - HYPOTENSION [None]
